FAERS Safety Report 23527119 (Version 2)
Quarter: 2024Q1

REPORT INFORMATION
  Report Type: Spontaneous
  Country: JP (occurrence: JP)
  Receive Date: 20240215
  Receipt Date: 20240319
  Transmission Date: 20240410
  Serious: Yes (Hospitalization, Other)
  Sender: FDA-Public Use
  Company Number: JP-ABBVIE-5641028

PATIENT
  Sex: Male

DRUGS (1)
  1. ASENAPINE MALEATE [Suspect]
     Active Substance: ASENAPINE MALEATE
     Indication: Product used for unknown indication
     Dosage: STRENGTH: 5 MILLIGRAM, AT BEDTIME
     Route: 060

REACTIONS (3)
  - Hyperventilation [Unknown]
  - Neuroleptic malignant syndrome [Unknown]
  - Extrapyramidal disorder [Unknown]
